FAERS Safety Report 24726475 (Version 2)
Quarter: 2025Q1

REPORT INFORMATION
  Report Type: Spontaneous
  Country: US (occurrence: US)
  Receive Date: 20241212
  Receipt Date: 20250102
  Transmission Date: 20250408
  Serious: Yes (Hospitalization, Other)
  Sender: TEVA
  Company Number: US-TEVA-VS-3272056

PATIENT
  Age: 53 Year
  Sex: Male

DRUGS (4)
  1. PREDNISONE [Suspect]
     Active Substance: PREDNISONE
     Indication: Prophylaxis against transplant rejection
     Route: 065
  2. BELATACEPT [Suspect]
     Active Substance: BELATACEPT
     Indication: Prophylaxis against transplant rejection
     Route: 050
  3. MYCOPHENOLATE SODIUM [Suspect]
     Active Substance: MYCOPHENOLATE SODIUM
     Indication: Prophylaxis against transplant rejection
     Route: 065
  4. IMMUNOGLOBULINS [Concomitant]
     Indication: Kidney transplant rejection
     Route: 042

REACTIONS (5)
  - Human herpesvirus 8 infection [Unknown]
  - Drug ineffective [Unknown]
  - Kaposi^s sarcoma [Recovered/Resolved]
  - Treatment noncompliance [Unknown]
  - Lymphadenopathy [Unknown]
